FAERS Safety Report 10868695 (Version 5)
Quarter: 2018Q3

REPORT INFORMATION
  Report Type: Spontaneous
  Country: JP (occurrence: JP)
  Receive Date: 20150225
  Receipt Date: 20180912
  Transmission Date: 20181010
  Serious: Yes (Death, Other)
  Sender: FDA-Public Use
  Company Number: JP-PFIZER INC-2015065827

PATIENT
  Age: 82 Year
  Sex: Male

DRUGS (1)
  1. INLYTA [Suspect]
     Active Substance: AXITINIB
     Indication: RENAL CANCER METASTATIC
     Dosage: 1 DF, 2X/DAY
     Route: 048
     Dates: start: 20141209, end: 20150127

REACTIONS (6)
  - Proteinuria [Recovering/Resolving]
  - Nephrotic syndrome [Not Recovered/Not Resolved]
  - Hypertension [Unknown]
  - Pneumocystis jirovecii pneumonia [Fatal]
  - Renal cancer metastatic [Fatal]
  - Disease progression [Fatal]

NARRATIVE: CASE EVENT DATE: 20150127
